FAERS Safety Report 19193452 (Version 1)
Quarter: 2021Q2

REPORT INFORMATION
  Report Type: Report from Study
  Country: None (occurrence: AU)
  Receive Date: 20210428
  Receipt Date: 20210428
  Transmission Date: 20210717
  Serious: Yes (Other)
  Sender: FDA-Public Use
  Company Number: AU-ABBVIE-21K-008-3880074-00

PATIENT
  Sex: Male

DRUGS (1)
  1. LUCRIN DEPOT [Suspect]
     Active Substance: LEUPROLIDE ACETATE
     Indication: PROSTATE CANCER
     Route: 030

REACTIONS (2)
  - Metastases to lung [Unknown]
  - Lymphadenopathy [Unknown]
